FAERS Safety Report 10419366 (Version 7)
Quarter: 2014Q4

REPORT INFORMATION
  Report Type: Spontaneous
  Country: DE (occurrence: None)
  Receive Date: 20140827
  Receipt Date: 20141118
  Transmission Date: 20150528
  Serious: Yes (Hospitalization)
  Sender: FDA-Public Use
  Company Number: KAD201408-000979

PATIENT
  Age: 70 Year
  Sex: Male

DRUGS (13)
  1. HEPA MERZA (ORNATHIN ASPARTATE) [Concomitant]
  2. PANTOZOL (PANTOPRAZOLE) [Concomitant]
  3. RIBASPHERE [Suspect]
     Active Substance: RIBAVIRIN
     Indication: HEPATITIS C
     Route: 048
     Dates: start: 20140326, end: 20140812
  4. TOREM (TORASEMIDE) [Concomitant]
     Active Substance: TORSEMIDE
  5. XIFAXAN [Concomitant]
     Active Substance: RIFAXIMIN
  6. FAMOTIDIN (FAMOTIDINE) [Concomitant]
  7. RAMIPRIL (RAMIPRIL) [Concomitant]
     Active Substance: RAMIPRIL
  8. LACTULOSE (LACTULOSE) [Concomitant]
     Active Substance: LACTULOSE
  9. CIPROFLOXACIN (CIPROFLOXACIN) [Concomitant]
     Active Substance: CIPROFLOXACIN
  10. METRONIDAZOL (METRONIDAZOLE) [Concomitant]
     Active Substance: METRONIDAZOLE
  11. SOFOSBUVIR/LEDIPASVIR [Suspect]
     Active Substance: LEDIPASVIR\SOFOSBUVIR
     Indication: HEPATITIS C
     Dosage: 1 DOSAGE FORM
     Route: 048
     Dates: start: 20140326, end: 20140819
  12. SPIRONOLACTONE (SPIRONOLACTONE) [Concomitant]
     Active Substance: SPIRONOLACTONE
  13. L-THYROXIN (L-THYROXIN) [Concomitant]

REACTIONS (7)
  - Hepatotoxicity [None]
  - Gamma-glutamyltransferase increased [None]
  - Dialysis [None]
  - Reticulocyte count increased [None]
  - Condition aggravated [None]
  - Hyperbilirubinaemia [None]
  - Ascites [None]

NARRATIVE: CASE EVENT DATE: 20140813
